FAERS Safety Report 11700199 (Version 1)
Quarter: 2015Q4

REPORT INFORMATION
  Report Type: Spontaneous
  Country: US (occurrence: None)
  Receive Date: 20151104
  Receipt Date: 20151104
  Transmission Date: 20160304
  Serious: Yes (Other)
  Sender: FDA-Public Use
  Company Number: None

PATIENT
  Age: 80 Year
  Sex: Male
  Weight: 75.75 kg

DRUGS (19)
  1. GLYCERYL TRINITRATE [Concomitant]
     Active Substance: NITROGLYCERIN
  2. MULTIVITAMIN [Concomitant]
     Active Substance: VITAMINS
  3. SOMATULINE DEPOT [Suspect]
     Active Substance: LANREOTIDE ACETATE
     Indication: HEPATIC CANCER METASTATIC
     Dates: start: 20150908, end: 20151008
  4. CALCIUM CITRATE [Concomitant]
     Active Substance: CALCIUM CITRATE
  5. MAGNESIUM OXIDE. [Concomitant]
     Active Substance: MAGNESIUM OXIDE
  6. BETA GLUCAN [Concomitant]
     Active Substance: BETA GLUCAN
  7. FLAXSEED [Concomitant]
     Active Substance: FLAX SEED
  8. VITAMIN B12 [Concomitant]
     Active Substance: CYANOCOBALAMIN
  9. PREVACID [Concomitant]
     Active Substance: LANSOPRAZOLE
  10. SYNTHROID [Concomitant]
     Active Substance: LEVOTHYROXINE SODIUM
  11. FENNELL [Concomitant]
  12. ATENOLOL. [Concomitant]
     Active Substance: ATENOLOL
  13. PRAVASTATIN SODIUM. [Concomitant]
     Active Substance: PRAVASTATIN SODIUM
  14. BENEFIBER [Concomitant]
     Active Substance: STARCH, WHEAT
  15. GLUCOSAMINE [Concomitant]
     Active Substance: GLUCOSAMINE
  16. TEA [Concomitant]
     Active Substance: TEA LEAF
  17. SHARK LIVER OIL CAPSULE [Concomitant]
  18. FERROUS SULFATE [Concomitant]
     Active Substance: FERROUS SULFATE\FERROUS SULFATE, DRIED
  19. BLACK RASPBERRY POWDER [Concomitant]

REACTIONS (2)
  - Diarrhoea [None]
  - Hypersensitivity [None]

NARRATIVE: CASE EVENT DATE: 20151023
